FAERS Safety Report 10084445 (Version 3)
Quarter: 2014Q2

REPORT INFORMATION
  Report Type: Report from Study
  Country: HK (occurrence: HK)
  Receive Date: 20140417
  Receipt Date: 20140505
  Transmission Date: 20141212
  Serious: Yes (Hospitalization)
  Sender: FDA-Public Use
  Company Number: HK-B.I. PHARMACEUTICALS,INC./RIDGEFIELD-2014-BI-16389BI

PATIENT
  Age: 65 Year
  Sex: Female
  Weight: 66 kg

DRUGS (5)
  1. AFATINIB [Suspect]
     Indication: NON-SMALL CELL LUNG CANCER
     Dosage: 40 MG
     Route: 048
     Dates: start: 20140321, end: 20140408
  2. CALCIUM CARBONATE CHEW [Concomitant]
     Indication: HYPOCALCAEMIA
     Dosage: 3 G
     Route: 048
     Dates: start: 20140408
  3. SODIUM CHLORIDE [Concomitant]
     Indication: HYPONATRAEMIA
     Dosage: 1800 MG
     Route: 048
     Dates: start: 20140409, end: 20140413
  4. AUGMENTIN [Concomitant]
     Indication: BACTERIAL INFECTION
     Dosage: 1125 MG
     Route: 048
     Dates: start: 20140409, end: 20140415
  5. LASIX [Concomitant]
     Indication: OEDEMA
     Dosage: 40 MG
     Route: 048
     Dates: start: 20140408, end: 20140408

REACTIONS (9)
  - Paronychia [Unknown]
  - Diarrhoea [Unknown]
  - Rash [Unknown]
  - Hypochromic anaemia [Unknown]
  - Blood urea increased [Unknown]
  - Blood creatinine increased [Unknown]
  - Dehydration [Not Recovered/Not Resolved]
  - Diarrhoea [Not Recovered/Not Resolved]
  - Anaemia [Recovered/Resolved]
